FAERS Safety Report 5625221-1 (Version None)
Quarter: 2008Q1

REPORT INFORMATION
  Report Type: 
  Country: None (occurrence: None)
  Receive Date: 20080208
  Receipt Date: 20080128
  Transmission Date: 20080703
  Serious: Yes (Hospitalization)
  Sender: FDA-Public Use
  Company Number: 1-1575248/MED-08033

PATIENT
  Sex: Male

DRUGS (6)
  1. PREDNISONE [Suspect]
     Indication: CORONARY ARTERY RESTENOSIS
     Dosage: SEE B .5., ORAL
     Route: 048
  2. CLOPIDOGREL [Suspect]
     Indication: CORONARY ARTERY RESTENOSIS
     Dosage: 75 MG OR 500 MG, DAILY, ORAL
     Route: 048
  3. STATIN DRUG [Concomitant]
  4. ASPIRIN [Concomitant]
  5. DIURETIC [Concomitant]
  6. ANTACID TAB [Concomitant]

REACTIONS (1)
  - NEUTROPENIA [None]
